FAERS Safety Report 5813688-5 (Version None)
Quarter: 2008Q3

REPORT INFORMATION
  Report Type: 
  Country: None (occurrence: None)
  Receive Date: 20080717
  Receipt Date: 20080715
  Transmission Date: 20090109
  Serious: Yes (Hospitalization)
  Sender: FDA-Public Use
  Company Number: HQ2042211OCT2000

PATIENT
  Sex: Male

DRUGS (16)
  1. TIGECYCLINE [Suspect]
     Indication: INFECTION
     Dosage: 100 MG LOAD, THEN 50 MG EVERY 12 HOURS
     Route: 042
     Dates: start: 20000911, end: 20000916
  2. METRONIDAZOLE HCL [Concomitant]
     Dosage: 2000 MG DAILY
     Dates: start: 20000911, end: 20000930
  3. MORPHINE [Concomitant]
     Indication: PAIN
     Dosage: UNKNOWN
     Dates: start: 20000912
  4. MEPERIDINE HYDROCHLORIDE [Concomitant]
     Dosage: UNKNOWN
     Dates: start: 20000911
  5. MEPERIDINE HYDROCHLORIDE [Concomitant]
     Dosage: UNKNOWN
     Dates: start: 20000916, end: 20000923
  6. HYDROXYZINE [Concomitant]
     Dosage: UNKNOWN
     Dates: start: 20000911
  7. HYDROXYZINE [Concomitant]
     Dosage: UNKNOWN
     Dates: start: 20000916, end: 20000923
  8. CEFEPIME [Concomitant]
     Dosage: UNKNOWN
     Dates: start: 20000918, end: 20000927
  9. COMPAZINE [Concomitant]
     Dosage: UNKNOWN
     Dates: start: 20000914, end: 20000916
  10. REGLAN [Concomitant]
     Dosage: UNKNOWN
     Dates: start: 20000915, end: 20000916
  11. ZANTAC [Concomitant]
     Dosage: UNKNOWN
     Dates: start: 20000912, end: 20000913
  12. AMPICILLIN [Concomitant]
     Dosage: UNKNOWN
     Dates: start: 20000910
  13. BENADRYL [Concomitant]
     Dosage: UNKNOWN
     Dates: start: 20000918
  14. BENADRYL [Concomitant]
     Dosage: UNKNOWN
     Dates: start: 20000920
  15. GENTAMICIN SULFATE [Concomitant]
     Dosage: UNKNOWN
     Dates: start: 20000911, end: 20000911
  16. ACETAMINOPHEN [Concomitant]
     Dosage: UNKNOWN
     Dates: start: 20000920

REACTIONS (4)
  - ABDOMINAL ABSCESS [None]
  - COLONIC FISTULA [None]
  - FUNGAEMIA [None]
  - PSEUDOMEMBRANOUS COLITIS [None]
